FAERS Safety Report 24785673 (Version 2)
Quarter: 2025Q1

REPORT INFORMATION
  Report Type: Spontaneous
  Country: JP (occurrence: JP)
  Receive Date: 20241228
  Receipt Date: 20250109
  Transmission Date: 20250408
  Serious: Yes (Hospitalization, Other)
  Sender: GLAXOSMITHKLINE
  Company Number: JP-GSKNCCC-Case-02158669_AE-91960

PATIENT

DRUGS (1)
  1. ATOVAQUONE [Suspect]
     Active Substance: ATOVAQUONE
     Dosage: 2 DF, 1D, USED ON A YEARLY BASIS

REACTIONS (6)
  - Dehydration [Unknown]
  - Liver disorder [Unknown]
  - Dementia [Unknown]
  - Pain [Unknown]
  - Hypophagia [Unknown]
  - Performance status decreased [Unknown]
